FAERS Safety Report 22371618 (Version 1)
Quarter: 2023Q2

REPORT INFORMATION
  Report Type: Spontaneous
  Country: US (occurrence: None)
  Receive Date: 20230525
  Receipt Date: 20230525
  Transmission Date: 20230721
  Serious: No
  Sender: FDA-Public Use
  Company Number: None

PATIENT
  Sex: Male

DRUGS (1)
  1. CAPECITABINE [Suspect]
     Active Substance: CAPECITABINE
     Indication: Colon cancer
     Dosage: OTHER QUANTITY : 3T;?FREQUENCY : TWICE A DAY;?OTHER ROUTE : PO14DON7D0FF;?
     Route: 050

REACTIONS (2)
  - Drug intolerance [None]
  - Therapy interrupted [None]
